FAERS Safety Report 14363039 (Version 1)
Quarter: 2018Q1

REPORT INFORMATION
  Report Type: Report from Study
  Country: US (occurrence: US)
  Receive Date: 20180108
  Receipt Date: 20180108
  Transmission Date: 20180509
  Serious: Yes (Death)
  Sender: FDA-Public Use
  Company Number: US-TORRENT-00005422

PATIENT
  Age: 53 Year
  Sex: Female

DRUGS (8)
  1. ZOLPIDEM [Suspect]
     Active Substance: ZOLPIDEM\ZOLPIDEM TARTRATE
     Indication: PRODUCT USED FOR UNKNOWN INDICATION
     Dosage: ROUTE OF ADMINISTRATION:INGESTION PLUS DERMAL
  2. LEVOTHYROXINE. [Suspect]
     Active Substance: LEVOTHYROXINE
     Indication: PRODUCT USED FOR UNKNOWN INDICATION
     Dosage: ROUTE OF ADMINISTRATION:INGESTION PLUS DERMAL
  3. ALPRAZOLAM. [Suspect]
     Active Substance: ALPRAZOLAM
     Indication: PRODUCT USED FOR UNKNOWN INDICATION
     Dosage: ROUTE OF ADMINISTRATION:INGESTION PLUS DERMAL
  4. OXYCODONE AND ACETAMINOPHEN [Suspect]
     Active Substance: ACETAMINOPHEN\OXYCODONE HYDROCHLORIDE
     Indication: PRODUCT USED FOR UNKNOWN INDICATION
     Dosage: ROUTE OF ADMINISTRATION:INGESTION PLUS DERMAL
  5. HYDROCODONE/ACETAMINOPHEN [Suspect]
     Active Substance: ACETAMINOPHEN\HYDROCODONE
     Indication: PRODUCT USED FOR UNKNOWN INDICATION
     Dosage: ROUTE OF ADMINISTRATION:INGESTION PLUS DERMAL
  6. FENTANYL. [Suspect]
     Active Substance: FENTANYL
     Indication: PRODUCT USED FOR UNKNOWN INDICATION
     Dosage: ROUTE OF ADMINISTRATION:INGESTION PLUS DERMAL
  7. TOLTERODINE [Suspect]
     Active Substance: TOLTERODINE
     Indication: PRODUCT USED FOR UNKNOWN INDICATION
     Dosage: ROUTE OF ADMINISTRATION:INGESTION PLUS DERMAL
  8. CARISOPRODOL. [Suspect]
     Active Substance: CARISOPRODOL
     Indication: PRODUCT USED FOR UNKNOWN INDICATION
     Dosage: ROUTE OF ADMINISTRATION:INGESTION PLUS DERMAL

REACTIONS (2)
  - Toxicity to various agents [Fatal]
  - Completed suicide [Fatal]
